FAERS Safety Report 14649035 (Version 1)
Quarter: 2018Q1

REPORT INFORMATION
  Report Type: Spontaneous
  Country: SE (occurrence: SE)
  Receive Date: 20180316
  Receipt Date: 20180316
  Transmission Date: 20180509
  Serious: Yes (Other)
  Sender: FDA-Public Use
  Company Number: SE-TEVA-2018-SE-869142

PATIENT
  Age: 52 Year
  Sex: Male

DRUGS (1)
  1. TERBINAFINE. [Suspect]
     Active Substance: TERBINAFINE
     Indication: FUNGAL INFECTION
     Route: 048

REACTIONS (2)
  - Antiphospholipid antibodies positive [Recovered/Resolved]
  - International normalised ratio increased [Recovered/Resolved]
